FAERS Safety Report 11199405 (Version 1)
Quarter: 2015Q2

REPORT INFORMATION
  Report Type: Spontaneous
  Country: GB (occurrence: None)
  Receive Date: 20150616
  Receipt Date: 20150616
  Transmission Date: 20150821
  Serious: Yes (Other)
  Sender: FDA-Public Use
  Company Number: DEP_03023_2015

PATIENT
  Age: 63 Year
  Sex: Female
  Weight: 61 kg

DRUGS (3)
  1. LYRICA [Concomitant]
     Active Substance: PREGABALIN
  2. MORPHGESIC [Concomitant]
  3. TAPENTADOL [Suspect]
     Active Substance: TAPENTADOL
     Indication: PAIN
     Route: 048
     Dates: start: 20150415, end: 20150430

REACTIONS (3)
  - Nausea [None]
  - Depressed mood [None]
  - Agitation [None]

NARRATIVE: CASE EVENT DATE: 20150416
